FAERS Safety Report 8982693 (Version 2)
Quarter: 2013Q1

REPORT INFORMATION
  Report Type: Spontaneous
  Country: IE (occurrence: IE)
  Receive Date: 20121221
  Receipt Date: 20130201
  Transmission Date: 20140127
  Serious: Yes (Hospitalization)
  Sender: FDA-Public Use
  Company Number: IE-BAXTER-2012BAX028095

PATIENT
  Age: 75 Year
  Sex: Female

DRUGS (2)
  1. KIOVIG [Suspect]
     Indication: BLOOD DISORDER
     Route: 042
     Dates: start: 20121207, end: 20121207
  2. KIOVIG [Suspect]

REACTIONS (3)
  - Bradycardia [Recovered/Resolved]
  - Blood pressure decreased [Recovered/Resolved]
  - Unresponsive to stimuli [Recovered/Resolved]
